FAERS Safety Report 18445477 (Version 1)
Quarter: 2020Q4

REPORT INFORMATION
  Report Type: Spontaneous
  Country: DE (occurrence: DE)
  Receive Date: 20201030
  Receipt Date: 20201030
  Transmission Date: 20210114
  Serious: Yes (Other)
  Sender: FDA-Public Use
  Company Number: DE-TEVA-2020-DE-1843111

PATIENT
  Age: 14 Year
  Sex: Male
  Weight: 83 kg

DRUGS (1)
  1. KINECTEEN 36 MG [Suspect]
     Active Substance: METHYLPHENIDATE
     Indication: ATTENTION DEFICIT HYPERACTIVITY DISORDER
     Route: 065
     Dates: start: 201904

REACTIONS (1)
  - Brain scan abnormal [Not Recovered/Not Resolved]
